FAERS Safety Report 13903469 (Version 6)
Quarter: 2018Q2

REPORT INFORMATION
  Report Type: Spontaneous
  Country: US (occurrence: US)
  Receive Date: 20170824
  Receipt Date: 20180419
  Transmission Date: 20180711
  Serious: Yes (Other)
  Sender: FDA-Public Use
  Company Number: US-PFIZER INC-2017362955

PATIENT
  Age: 59 Year
  Sex: Female
  Weight: 87.53 kg

DRUGS (6)
  1. IBRANCE [Suspect]
     Active Substance: PALBOCICLIB
     Dosage: 125 MG, CYCLIC (D1-21 Q 28 DAYS)
     Route: 048
  2. IBRANCE [Suspect]
     Active Substance: PALBOCICLIB
     Dosage: 125 MG, CYCLIC (D1-21 Q28 DAYS)
     Route: 048
     Dates: start: 20170811, end: 20180413
  3. IBRANCE [Suspect]
     Active Substance: PALBOCICLIB
     Dosage: 125 MG, CYCLIC (DAY 1-21 Q 28 DAYS)
     Route: 048
  4. IBRANCE [Suspect]
     Active Substance: PALBOCICLIB
     Dosage: 125 MG, CYCLIC (DAY 1-21 Q 28 DAYS)
  5. IBRANCE [Suspect]
     Active Substance: PALBOCICLIB
     Indication: BREAST CANCER METASTATIC
     Dosage: 125 MG, CYCLIC (D1-21 Q 28 DAYS)
     Route: 048
     Dates: start: 20170811
  6. IBRANCE [Suspect]
     Active Substance: PALBOCICLIB
     Dosage: 125 MG, CYCLIC (D1-21 Q 28 DAYS)
     Route: 048

REACTIONS (12)
  - Neoplasm progression [Unknown]
  - Oral discomfort [Recovered/Resolved]
  - Vomiting [Unknown]
  - Nausea [Unknown]
  - Eye disorder [Unknown]
  - Headache [Unknown]
  - Cerebrovascular accident [Unknown]
  - Eczema [Unknown]
  - Stomatitis [Recovered/Resolved]
  - Oral pain [Recovered/Resolved]
  - Oral disorder [Recovering/Resolving]
  - Pruritus [Unknown]

NARRATIVE: CASE EVENT DATE: 2018
